FAERS Safety Report 5236481-3 (Version None)
Quarter: 2007Q1

REPORT INFORMATION
  Report Type: 
  Country: None (occurrence: None)
  Receive Date: 20061208
  Receipt Date: 20060607
  Transmission Date: 20070707
  Serious: Yes (Other)
  Sender: FDA-Public Use
  Company Number: 2006UW11959

PATIENT
  Age: 67 Year
  Sex: Female
  Weight: 61.234 kg

DRUGS (5)
  1. CRESTOR [Suspect]
     Indication: BLOOD CHOLESTEROL INCREASED
     Dosage: 10 MG QD PO
     Route: 048
     Dates: start: 20060401
  2. CRESTOR [Suspect]
     Indication: BLOOD TRIGLYCERIDES INCREASED
     Dosage: 10 MG QD PO
     Route: 048
     Dates: start: 20060401
  3. ACTOS [Concomitant]
  4. ASPIRIN [Concomitant]
  5. CELEBREX [Concomitant]

REACTIONS (3)
  - CHILLS [None]
  - CONSTIPATION [None]
  - MYALGIA [None]
